FAERS Safety Report 9610923 (Version 8)
Quarter: 2015Q1

REPORT INFORMATION
  Report Type: Spontaneous
  Country: US (occurrence: US)
  Receive Date: 20131009
  Receipt Date: 20150213
  Transmission Date: 20150721
  Serious: Yes (Hospitalization, Other)
  Sender: FDA-Public Use
  Company Number: US-009507513-1310USA000258

PATIENT
  Sex: Female
  Weight: 66.21 kg

DRUGS (5)
  1. ACIPHEX [Concomitant]
     Active Substance: RABEPRAZOLE SODIUM
     Indication: GASTROOESOPHAGEAL REFLUX DISEASE
     Dosage: UNK
     Dates: start: 1990, end: 2011
  2. ALENDRONATE SODIUM. [Suspect]
     Active Substance: ALENDRONATE SODIUM
     Indication: OSTEOPENIA
     Dosage: 70 MG, QD
     Route: 048
     Dates: start: 20080211, end: 20110809
  3. FOSAMAX [Suspect]
     Active Substance: ALENDRONATE SODIUM
     Dosage: 70 MG, QD
     Route: 048
     Dates: start: 20030430, end: 201109
  4. FOSAMAX [Suspect]
     Active Substance: ALENDRONATE SODIUM
     Indication: OSTEOPENIA
     Dosage: UNK
     Route: 048
     Dates: start: 1999, end: 201109
  5. OMEPRAZOLE. [Concomitant]
     Active Substance: OMEPRAZOLE
     Dosage: UNK
     Dates: start: 1990, end: 2011

REACTIONS (26)
  - Joint arthroplasty [Unknown]
  - Neck injury [Unknown]
  - Inappropriate schedule of drug administration [Unknown]
  - Chronic obstructive pulmonary disease [Unknown]
  - Gout [Unknown]
  - Haematoma [Unknown]
  - Osteoarthritis [Unknown]
  - Sleep apnoea syndrome [Unknown]
  - Intramedullary rod insertion [Unknown]
  - Bone graft [Unknown]
  - Medical device removal [Unknown]
  - Limb asymmetry [Not Recovered/Not Resolved]
  - Fracture nonunion [Unknown]
  - Medical device change [Unknown]
  - Deep vein thrombosis [Unknown]
  - Inappropriate schedule of drug administration [Unknown]
  - Device failure [Unknown]
  - Hypothyroidism [Unknown]
  - Cardiac murmur [Unknown]
  - Femur fracture [Unknown]
  - Joint surgery [Unknown]
  - Osteoporosis [Unknown]
  - Drug hypersensitivity [Unknown]
  - Intramedullary rod insertion [Unknown]
  - Oral surgery [Unknown]
  - Spinal osteoarthritis [Unknown]

NARRATIVE: CASE EVENT DATE: 2000
